FAERS Safety Report 13917929 (Version 1)
Quarter: 2017Q3

REPORT INFORMATION
  Report Type: Spontaneous
  Country: US (occurrence: US)
  Receive Date: 20170829
  Receipt Date: 20170829
  Transmission Date: 20171127
  Serious: No
  Sender: FDA-Public Use
  Company Number: US-SA-2016SA152076

PATIENT
  Age: 31 Year
  Sex: Male

DRUGS (1)
  1. FABRAZYME [Suspect]
     Active Substance: AGALSIDASE BETA
     Indication: FABRY^S DISEASE
     Dosage: EARLY 2000
     Route: 041
     Dates: start: 2000

REACTIONS (5)
  - Pain [Unknown]
  - Amnesia [Unknown]
  - Depression [Unknown]
  - Condition aggravated [Unknown]
  - Abnormal behaviour [Unknown]
